FAERS Safety Report 14709724 (Version 1)
Quarter: 2018Q2

REPORT INFORMATION
  Report Type: Spontaneous
  Country: US (occurrence: US)
  Receive Date: 20180403
  Receipt Date: 20180403
  Transmission Date: 20180711
  Serious: Yes (Hospitalization, Other)
  Sender: FDA-Public Use
  Company Number: US-ABBVIE-18P-163-2305370-00

PATIENT
  Age: 46 Year
  Sex: Male
  Weight: 74 kg

DRUGS (2)
  1. DEPAKOTE ER [Suspect]
     Active Substance: DIVALPROEX SODIUM
     Indication: BIPOLAR DISORDER
     Route: 048
     Dates: start: 2016, end: 20180127
  2. DEPAKOTE ER [Suspect]
     Active Substance: DIVALPROEX SODIUM
     Route: 048
     Dates: start: 20180219

REACTIONS (10)
  - Sepsis [Recovered/Resolved]
  - Drug dispensing error [Recovered/Resolved]
  - Suicide attempt [Recovered/Resolved]
  - Influenza [Recovered/Resolved]
  - Head injury [Recovered/Resolved]
  - Catatonia [Recovered/Resolved]
  - Burns third degree [Recovering/Resolving]
  - Syncope [Unknown]
  - Dehydration [Recovered/Resolved]
  - Tinnitus [Not Recovered/Not Resolved]

NARRATIVE: CASE EVENT DATE: 201712
